FAERS Safety Report 11309990 (Version 1)
Quarter: 2015Q3

REPORT INFORMATION
  Report Type: Spontaneous
  Country: US (occurrence: US)
  Receive Date: 20150724
  Receipt Date: 20150724
  Transmission Date: 20151125
  Serious: Yes (Other)
  Sender: FDA-Public Use
  Company Number: US-PFIZER INC-2015236475

PATIENT
  Sex: Male

DRUGS (1)
  1. AVINZA [Suspect]
     Active Substance: MORPHINE SULFATE
     Indication: PAIN
     Dosage: 30 MG, UNK

REACTIONS (3)
  - Aortic valve disease [Unknown]
  - Cartilage injury [Unknown]
  - Infection [Unknown]
